FAERS Safety Report 9219218 (Version 1)
Quarter: 2013Q2

REPORT INFORMATION
  Report Type: Spontaneous
  Country: US (occurrence: US)
  Receive Date: 20130409
  Receipt Date: 20130409
  Transmission Date: 20140414
  Serious: No
  Sender: FDA-Public Use
  Company Number: US-BAYER-2013-044522

PATIENT
  Age: 83 Year
  Sex: Female
  Weight: 68.03 kg

DRUGS (8)
  1. ALEVE CAPLET [Suspect]
     Indication: ANALGESIC THERAPY
     Dosage: 2 DF, PRN
     Route: 048
     Dates: start: 20130328, end: 20130401
  2. ALEVE CAPLET [Suspect]
     Indication: ANALGESIC THERAPY
     Dosage: 2 DF, BID
     Route: 048
     Dates: start: 20130329, end: 20130329
  3. BAYER CHEWABLE LOW DOSE BABY ASPIRIN TABLET ORANGE [Concomitant]
     Indication: ISCHAEMIC HEART DISEASE PROPHYLAXIS
     Dosage: UNK
  4. IRON [Concomitant]
  5. INSULIN [Concomitant]
  6. BLOOD PRESSURE [Concomitant]
  7. CYMBALTA [Concomitant]
  8. LYRICA [Concomitant]

REACTIONS (2)
  - Drug ineffective [None]
  - Overdose [None]
